FAERS Safety Report 17280073 (Version 3)
Quarter: 2020Q1

REPORT INFORMATION
  Report Type: Spontaneous
  Country: RU (occurrence: RU)
  Receive Date: 20200117
  Receipt Date: 20200130
  Transmission Date: 20200409
  Serious: Yes (Hospitalization, Other)
  Sender: FDA-Public Use
  Company Number: RU-AUROBINDO-AUR-APL-2020-002727

PATIENT
  Sex: Male
  Weight: 2.23 kg

DRUGS (1)
  1. AMOXICILLIN+CLAVULANIC ACID [Suspect]
     Active Substance: AMOXICILLIN\CLAVULANIC ACID
     Indication: ANTIBIOTIC THERAPY
     Dosage: 875 MILLIGRAM, TWO TIMES A DAY
     Route: 064

REACTIONS (5)
  - Premature baby [Recovered/Resolved]
  - Foetal exposure during pregnancy [Recovered/Resolved]
  - Fatigue [Recovering/Resolving]
  - Neonatal respiratory distress syndrome [Recovered/Resolved]
  - Cerebral ischaemia [Recovered/Resolved]
